FAERS Safety Report 4266015-1 (Version None)
Quarter: 2004Q1

REPORT INFORMATION
  Report Type: 
  Country: None (occurrence: None)
  Receive Date: 20040107
  Receipt Date: 20040107
  Transmission Date: 20041129
  Serious: Yes (Hospitalization)
  Sender: FDA-Public Use
  Company Number: None

PATIENT
  Age: 75 Year
  Sex: Male
  Weight: 82.6 kg

DRUGS (5)
  1. ROSIGLITAZONE 4MG [Suspect]
     Indication: PROSTATE CANCER
     Dosage: 4 MG BID PO
     Route: 048
     Dates: start: 20011022
  2. PACEMAKER [Concomitant]
  3. REGLAN [Concomitant]
  4. SELENIUM TRACE METAL ADDITIVE [Concomitant]
  5. VITAMIN E [Concomitant]

REACTIONS (2)
  - DIZZINESS [None]
  - SYNCOPE [None]
